FAERS Safety Report 6451500-4 (Version None)
Quarter: 2009Q4

REPORT INFORMATION
  Report Type: 
  Country: None (occurrence: None)
  Receive Date: 20091123
  Receipt Date: 20090709
  Transmission Date: 20100525
  Serious: No
  Sender: FDA-Public Use
  Company Number: US-BRISTOL-MYERS SQUIBB COMPANY-14696926

PATIENT
  Sex: Female

DRUGS (2)
  1. AVALIDE [Suspect]
     Dosage: 30-JUNE
  2. LABETALOL HCL [Suspect]

REACTIONS (4)
  - DRY EYE [None]
  - DRY MOUTH [None]
  - FEELING ABNORMAL [None]
  - NASAL DRYNESS [None]
